FAERS Safety Report 5240568-9 (Version None)
Quarter: 2007Q1

REPORT INFORMATION
  Report Type: 
  Country: None (occurrence: None)
  Receive Date: 20070219
  Receipt Date: 20070206
  Transmission Date: 20070707
  Serious: Yes (Other)
  Sender: FDA-Public Use
  Company Number: CA-ROCHE-481616

PATIENT
  Age: 44 Year
  Sex: Female
  Weight: 70 kg

DRUGS (8)
  1. TORADOL [Suspect]
     Indication: DRUG USE FOR UNKNOWN INDICATION
     Route: 065
  2. AMITRIPTYLINE HCL [Interacting]
     Indication: DRUG USE FOR UNKNOWN INDICATION
     Route: 065
  3. TOPAMAX [Interacting]
     Indication: DRUG USE FOR UNKNOWN INDICATION
     Route: 048
  4. OXYCODONE HYDROCHLORIDE AND ACETAMINOPHEN [Interacting]
     Indication: DRUG USE FOR UNKNOWN INDICATION
     Route: 065
  5. GABAPENTIN [Concomitant]
  6. ASPIRIN [Concomitant]
  7. ELAVIL [Concomitant]
  8. OXYCODONE HCL [Concomitant]

REACTIONS (8)
  - ANXIETY [None]
  - CRYING [None]
  - DIARRHOEA [None]
  - MALAISE [None]
  - NEUROPATHY [None]
  - PANIC REACTION [None]
  - PARANOIA [None]
  - TREMOR [None]
